FAERS Safety Report 12645415 (Version 1)
Quarter: 2016Q3

REPORT INFORMATION
  Report Type: Spontaneous
  Country: US (occurrence: US)
  Receive Date: 20160811
  Receipt Date: 20160811
  Transmission Date: 20161109
  Serious: No
  Sender: FDA-Public Use
  Company Number: US-JAZZ-2016-US-004549

PATIENT
  Sex: Male

DRUGS (21)
  1. MODAFINIL. [Concomitant]
     Active Substance: MODAFINIL
  2. CLARITIN [Concomitant]
     Active Substance: LORATADINE
  3. VALTREX [Concomitant]
     Active Substance: VALACYCLOVIR HYDROCHLORIDE
  4. SINGULAIR [Concomitant]
     Active Substance: MONTELUKAST SODIUM
  5. ALLEGRA ALLERGY [Concomitant]
     Active Substance: FEXOFENADINE HYDROCHLORIDE
  6. BELVIQ [Concomitant]
     Active Substance: LORCASERIN HYDROCHLORIDE
  7. CIALIS [Concomitant]
     Active Substance: TADALAFIL
  8. LIPITOR [Concomitant]
     Active Substance: ATORVASTATIN CALCIUM
  9. VICTOZA [Concomitant]
     Active Substance: LIRAGLUTIDE
  10. LUNESTA [Concomitant]
     Active Substance: ESZOPICLONE
  11. XYREM [Suspect]
     Active Substance: SODIUM OXYBATE
     Indication: NARCOLEPSY
     Dosage: 3 G, BID
     Route: 048
     Dates: start: 20160305, end: 20160329
  12. ROPINIROLE. [Concomitant]
     Active Substance: ROPINIROLE
  13. LISINOPRIL. [Concomitant]
     Active Substance: LISINOPRIL
  14. PRILOSEC [Concomitant]
     Active Substance: OMEPRAZOLE MAGNESIUM
  15. LISINOPRIL. [Concomitant]
     Active Substance: LISINOPRIL
  16. XYREM [Suspect]
     Active Substance: SODIUM OXYBATE
     Dosage: 3.5 G, BID
     Route: 048
     Dates: start: 201603
  17. CLONAZEPAM. [Concomitant]
     Active Substance: CLONAZEPAM
  18. XYZAL [Concomitant]
     Active Substance: LEVOCETIRIZINE DIHYDROCHLORIDE
  19. L-GLUTAMINE [Concomitant]
  20. CLONAZEPAM. [Concomitant]
     Active Substance: CLONAZEPAM
  21. VICTOZA [Concomitant]
     Active Substance: LIRAGLUTIDE

REACTIONS (2)
  - Narcolepsy [Not Recovered/Not Resolved]
  - Fatigue [Not Recovered/Not Resolved]

NARRATIVE: CASE EVENT DATE: 2016
